FAERS Safety Report 5542054-5 (Version None)
Quarter: 2007Q4

REPORT INFORMATION
  Report Type: 
  Country: None (occurrence: None)
  Receive Date: 20071210
  Receipt Date: 20071130
  Transmission Date: 20080405
  Serious: Yes (Other)
  Sender: FDA-Public Use
  Company Number: HQWYE076206AUG04

PATIENT

DRUGS (4)
  1. PREMARIN [Suspect]
  2. PROVERA [Suspect]
  3. PREMPHASE 14/14 [Suspect]
  4. PREMPRO [Suspect]

REACTIONS (1)
  - BREAST CANCER METASTATIC [None]
